FAERS Safety Report 4696036-6 (Version None)
Quarter: 2005Q2

REPORT INFORMATION
  Report Type: 
  Country: None (occurrence: None)
  Receive Date: 20050621
  Receipt Date: 20050620
  Transmission Date: 20051028
  Serious: Yes (Hospitalization)
  Sender: FDA-Public Use
  Company Number: FR-GLAXOSMITHKLINE-B0384932A

PATIENT
  Age: 4 Year
  Sex: Male

DRUGS (12)
  1. VENTOLIN [Suspect]
     Route: 065
     Dates: start: 20010101
  2. CLAMOXYL [Suspect]
     Indication: LUNG DISORDER
     Route: 065
     Dates: start: 20050510, end: 20050519
  3. ASPEGIC 325 [Suspect]
     Route: 065
     Dates: start: 20010101, end: 20050519
  4. LASILIX [Suspect]
     Route: 065
     Dates: start: 20010101, end: 20050527
  5. CIFLOX [Suspect]
     Indication: LUNG DISORDER
     Route: 065
     Dates: start: 20050510, end: 20050519
  6. SOMATROPIN [Suspect]
     Indication: GROWTH RETARDATION
     Route: 065
     Dates: start: 20050101, end: 20050518
  7. SINGULAIR [Suspect]
     Route: 065
     Dates: start: 20050501, end: 20050527
  8. FORLAX [Suspect]
     Route: 065
     Dates: start: 20041201, end: 20050527
  9. LOPRIL [Suspect]
     Route: 065
     Dates: start: 20020101
  10. ATROVENT [Suspect]
     Route: 065
     Dates: start: 20010101
  11. PULMICORT [Suspect]
     Route: 065
     Dates: start: 20010101
  12. MOTILIUM [Suspect]
     Route: 065
     Dates: start: 20050301, end: 20050519

REACTIONS (2)
  - LUNG DISORDER [None]
  - THROMBOCYTOPENIA [None]
